FAERS Safety Report 17443668 (Version 4)
Quarter: 2021Q2

REPORT INFORMATION
  Report Type: Spontaneous
  Country: DE (occurrence: DE)
  Receive Date: 20200221
  Receipt Date: 20210408
  Transmission Date: 20210716
  Serious: Yes (Death, Hospitalization, Other)
  Sender: FDA-Public Use
  Company Number: DE-REGENERON PHARMACEUTICALS, INC.-2020-20657

PATIENT

DRUGS (4)
  1. SIMVASTATIN. [Concomitant]
     Active Substance: SIMVASTATIN
     Indication: PRODUCT USED FOR UNKNOWN INDICATION
     Dosage: 20 MG, QD
     Route: 048
     Dates: end: 202001
  2. ASPIRIN. [Concomitant]
     Active Substance: ASPIRIN
     Indication: PRODUCT USED FOR UNKNOWN INDICATION
     Dosage: 1 DF, QD
     Route: 048
     Dates: end: 20200307
  3. PANTOZOLE [Concomitant]
     Active Substance: PANTOPRAZOLE SODIUM
     Indication: PRODUCT USED FOR UNKNOWN INDICATION
     Dosage: 40 MG, QD
     Route: 048
     Dates: end: 20200307
  4. LIBTAYO [Suspect]
     Active Substance: CEMIPLIMAB-RWLC
     Indication: SQUAMOUS CELL CARCINOMA
     Dosage: 350 MG
     Route: 042
     Dates: start: 20191213, end: 20191213

REACTIONS (1)
  - Hepatotoxicity [Fatal]

NARRATIVE: CASE EVENT DATE: 20200102
